FAERS Safety Report 19745939 (Version 1)
Quarter: 2021Q3

REPORT INFORMATION
  Report Type: Spontaneous
  Country: US (occurrence: US)
  Receive Date: 20210824
  Receipt Date: 20210824
  Transmission Date: 20211014
  Serious: Yes (Other)
  Sender: FDA-Public Use
  Company Number: None

PATIENT
  Age: 75 Year
  Sex: Female

DRUGS (1)
  1. GABAPENTIN   CAP [Suspect]
     Active Substance: GABAPENTIN
     Indication: POLYNEUROPATHY
     Route: 048
     Dates: start: 20190611

REACTIONS (4)
  - Diarrhoea [None]
  - Product quality issue [None]
  - Lip swelling [None]
  - Fatigue [None]

NARRATIVE: CASE EVENT DATE: 20210824
